FAERS Safety Report 4751648-6 (Version None)
Quarter: 2005Q3

REPORT INFORMATION
  Report Type: 
  Country: None (occurrence: None)
  Receive Date: 20050824
  Receipt Date: 20050822
  Transmission Date: 20060218
  Serious: Yes (Hospitalization)
  Sender: FDA-Public Use
  Company Number: US-BRISTOL-MYERS SQUIBB COMPANY-13085071

PATIENT
  Age: 52 Year
  Sex: Female
  Weight: 68 kg

DRUGS (3)
  1. BUSPAR [Suspect]
     Indication: MENOPAUSAL SYMPTOMS
     Route: 048
     Dates: start: 19900101
  2. RISPERDAL [Concomitant]
  3. ZOLOFT [Concomitant]

REACTIONS (3)
  - AMNESIA [None]
  - HYPOAESTHESIA [None]
  - POST-TRAUMATIC STRESS DISORDER [None]
